FAERS Safety Report 8922591 (Version 1)
Quarter: 2012Q4

REPORT INFORMATION
  Report Type: 
  Country: US (occurrence: US)
  Receive Date: 20121123
  Receipt Date: 20121123
  Transmission Date: 20130627
  Serious: No
  Sender: FDA-Public Use
  Company Number: US-PFIZER INC-2012291667

PATIENT
  Age: 50 Year
  Sex: Female
  Weight: 72.56 kg

DRUGS (4)
  1. CHANTIX [Suspect]
     Indication: SMOKING CESSATION THERAPY
     Dosage: 0.5 mg, 1x/day
     Route: 048
     Dates: start: 201105, end: 201105
  2. CRESTOR [Suspect]
     Indication: CHOLESTEROL HIGH
     Dosage: UNK
  3. PERCOCET [Concomitant]
     Indication: BACK PAIN
     Dosage: UNK
  4. SOMA [Concomitant]
     Indication: BACK PAIN
     Dosage: UNK

REACTIONS (2)
  - Blood cholesterol increased [Unknown]
  - Malaise [Unknown]
